FAERS Safety Report 23348214 (Version 1)
Quarter: 2023Q4

REPORT INFORMATION
  Report Type: Spontaneous
  Country: JP (occurrence: JP)
  Receive Date: 20231228
  Receipt Date: 20231228
  Transmission Date: 20240110
  Serious: Yes (Hospitalization, Other)
  Sender: FDA-Public Use
  Company Number: JP-PHATHOM PHARMACEUTICALS INC.-2023PHT00307

PATIENT
  Age: 59 Year
  Sex: Male
  Weight: 55 kg

DRUGS (8)
  1. VONOPRAZAN FUMARATE [Suspect]
     Active Substance: VONOPRAZAN FUMARATE
     Indication: Product used for unknown indication
     Dosage: 20 MG
     Route: 048
  2. LANTHANUM CARBONATE [Concomitant]
     Active Substance: LANTHANUM CARBONATE
  3. DAPRODUSTAT [Concomitant]
     Active Substance: DAPRODUSTAT
  4. BENFOTIAMINE [Concomitant]
     Active Substance: BENFOTIAMINE
  5. RAMELTEON [Concomitant]
     Active Substance: RAMELTEON
  6. LORATADINE [Concomitant]
     Active Substance: LORATADINE
  7. MOSAPRIDE CITRATE [Concomitant]
     Active Substance: MOSAPRIDE CITRATE
  8. LOPERAMIDE HYDROCHLORIDE [Concomitant]
     Active Substance: LOPERAMIDE HYDROCHLORIDE

REACTIONS (1)
  - Colitis microscopic [Recovering/Resolving]
